FAERS Safety Report 9789613 (Version 2)
Quarter: 2014Q1

REPORT INFORMATION
  Report Type: Spontaneous
  Country: IT (occurrence: IT)
  Receive Date: 20131231
  Receipt Date: 20140317
  Transmission Date: 20141002
  Serious: Yes (Hospitalization)
  Sender: FDA-Public Use
  Company Number: IT-BRISTOL-MYERS SQUIBB COMPANY-19936442

PATIENT
  Age: 92 Year
  Sex: Female

DRUGS (8)
  1. COUMADIN TABS 5 MG [Suspect]
     Indication: VENOUS THROMBOSIS
     Route: 048
     Dates: start: 20100101, end: 20130921
  2. TRAZODONE HCL [Concomitant]
  3. HALOPERIDOL [Concomitant]
  4. NITROGLYCERIN [Concomitant]
  5. AMIKACIN SULFATE [Concomitant]
  6. GUTRON [Concomitant]
     Dosage: 1DF=2.5 MG/ML ORAL DROPS
     Route: 048
  7. ZARIVIZ [Concomitant]
  8. FERROGRAD C [Concomitant]

REACTIONS (5)
  - Overdose [Recovering/Resolving]
  - International normalised ratio increased [Recovering/Resolving]
  - Somnolence [Recovering/Resolving]
  - Decreased appetite [Recovering/Resolving]
  - Pyrexia [Recovering/Resolving]
